FAERS Safety Report 9466125 (Version 7)
Quarter: 2014Q2

REPORT INFORMATION
  Report Type: Spontaneous
  Country: US (occurrence: US)
  Receive Date: 20130820
  Receipt Date: 20140612
  Transmission Date: 20141212
  Serious: Yes (Death, Hospitalization)
  Sender: FDA-Public Use
  Company Number: US-JNJFOC-20130809466

PATIENT
  Age: 66 Year
  Sex: Male
  Weight: 120.5 kg

DRUGS (15)
  1. XARELTO [Suspect]
     Indication: THROMBOSIS PROPHYLAXIS
     Route: 048
  2. XARELTO [Suspect]
     Indication: HIP ARTHROPLASTY
     Route: 048
  3. IBUPROFEN [Suspect]
     Route: 065
  4. IBUPROFEN [Suspect]
     Indication: PRODUCT USED FOR UNKNOWN INDICATION
     Dosage: AS NEEDED
     Route: 065
  5. TRAMADOL [Concomitant]
     Dosage: PRN
     Route: 065
  6. RANITIDINE [Concomitant]
     Route: 065
  7. MEMANTINE [Concomitant]
     Route: 065
  8. LORAZEPAM [Concomitant]
     Route: 065
  9. LEVETIRACETAM [Concomitant]
     Route: 065
  10. NORCO [Concomitant]
     Dosage: 10-325 MG AS NECESSARY
     Route: 048
  11. DULOXETINE [Concomitant]
     Route: 048
  12. DOXEPIN [Concomitant]
     Route: 065
  13. DONEPEZIL [Concomitant]
     Route: 065
  14. CYCLOBENZAPRINE [Concomitant]
     Dosage: AS NECESSARY
     Route: 065
  15. CITALOPRAM [Concomitant]
     Route: 065

REACTIONS (4)
  - Splenic haematoma [Fatal]
  - Shock haemorrhagic [Fatal]
  - Atelectasis [Unknown]
  - Haemoglobin decreased [Not Recovered/Not Resolved]
